FAERS Safety Report 8811561 (Version 3)
Quarter: 2014Q2

REPORT INFORMATION
  Report Type: Spontaneous
  Country: SG (occurrence: SG)
  Receive Date: 20120927
  Receipt Date: 20140626
  Transmission Date: 20141212
  Serious: Yes (Death, Life-Threatening, Hospitalization)
  Sender: FDA-Public Use
  Company Number: SG-JNJFOC-20120911973

PATIENT
  Age: 38 Year
  Sex: Female

DRUGS (2)
  1. XARELTO [Suspect]
     Indication: CARDIAC VENTRICULAR THROMBOSIS
     Route: 048
  2. PREDNISONE [Concomitant]

REACTIONS (8)
  - Death [Fatal]
  - Coronary artery thrombosis [Unknown]
  - Dyspnoea [Unknown]
  - Chest discomfort [Unknown]
  - Malaise [Unknown]
  - Off label use [Unknown]
  - Rash [Unknown]
  - Syncope [Unknown]
